FAERS Safety Report 5295401-6 (Version None)
Quarter: 2007Q2

REPORT INFORMATION
  Report Type: 
  Country: None (occurrence: None)
  Receive Date: 20070412
  Receipt Date: 20070402
  Transmission Date: 20071010
  Serious: Yes (Death)
  Sender: FDA-Public Use
  Company Number: JP-PFIZER INC-2007026901

PATIENT
  Age: 73 Year
  Sex: Male
  Weight: 51 kg

DRUGS (3)
  1. VFEND [Suspect]
     Indication: BRONCHOPULMONARY ASPERGILLOSIS
     Route: 042
     Dates: start: 20060701, end: 20060705
  2. VFEND [Suspect]
     Indication: BRONCHOPULMONARY ASPERGILLOSIS
     Route: 048
     Dates: start: 20060706, end: 20061124
  3. BIAPENEM [Concomitant]
     Indication: INFECTION
     Route: 042
     Dates: start: 20061106, end: 20061120

REACTIONS (1)
  - DEATH [None]
